FAERS Safety Report 16355684 (Version 1)
Quarter: 2019Q2

REPORT INFORMATION
  Report Type: Spontaneous
  Country: US (occurrence: US)
  Receive Date: 20190525
  Receipt Date: 20190525
  Transmission Date: 20190711
  Serious: Yes (Other)
  Sender: FDA-Public Use
  Company Number: US-TEVA-2019-US-1052641

PATIENT
  Sex: Male

DRUGS (1)
  1. COPAXONE [Suspect]
     Active Substance: GLATIRAMER ACETATE
     Indication: MULTIPLE SCLEROSIS
     Dates: start: 2015

REACTIONS (8)
  - Erythema [Unknown]
  - Product dose omission [Unknown]
  - Peripheral swelling [Unknown]
  - Heart rate increased [Unknown]
  - Hyperhidrosis [Unknown]
  - Arthralgia [Unknown]
  - Feeling hot [Unknown]
  - Tremor [Unknown]

NARRATIVE: CASE EVENT DATE: 2015
